FAERS Safety Report 6707570-9 (Version None)
Quarter: 2010Q2

REPORT INFORMATION
  Report Type: 
  Country: None (occurrence: None)
  Receive Date: 20100503
  Receipt Date: 20100423
  Transmission Date: 20101027
  Serious: Yes (Hospitalization, Other)
  Sender: FDA-Public Use
  Company Number: US-ELI_LILLY_AND_COMPANY-US201004006350

PATIENT
  Sex: Female
  Weight: 113.38 kg

DRUGS (10)
  1. BYETTA [Suspect]
     Indication: TYPE 2 DIABETES MELLITUS
     Dosage: UNK, 2/D
     Dates: start: 20050101
  2. SYNTHROID [Concomitant]
     Indication: THYROID DISORDER
     Dosage: 150 UG, DAILY (1/D)
     Route: 048
  3. POTASSIUM [Concomitant]
     Dosage: 20 MEQ, DAILY (1/D)
     Route: 048
  4. MAGNESIUM [Concomitant]
     Dosage: 500 MG, DAILY (1/D)
  5. SINGULAIR [Concomitant]
     Indication: HYPERSENSITIVITY
     Dosage: UNK, DAILY (1/D)
     Route: 048
  6. PROTONIX [Concomitant]
     Dosage: UNK, AS NEEDED
     Route: 048
  7. LASIX [Concomitant]
  8. ALLEGRA [Concomitant]
     Indication: HYPERSENSITIVITY
  9. PEPCID [Concomitant]
     Indication: HYPERSENSITIVITY
  10. INSULIN [Concomitant]

REACTIONS (3)
  - THYROID CANCER [None]
  - VOMITING PROJECTILE [None]
  - WEIGHT INCREASED [None]
